FAERS Safety Report 5128569-2 (Version None)
Quarter: 2006Q4

REPORT INFORMATION
  Report Type: 
  Country: None (occurrence: None)
  Receive Date: 20061017
  Receipt Date: 20060530
  Transmission Date: 20070319
  Serious: Yes (Other)
  Sender: FDA-Public Use
  Company Number: ZA-GLAXOSMITHKLINE-B0426031B

PATIENT
  Sex: Female
  Weight: 2.9 kg

DRUGS (1)
  1. AUGMENTIN [Suspect]
     Indication: DRUG USE FOR UNKNOWN INDICATION
     Dates: start: 20060101, end: 20060101

REACTIONS (10)
  - ATRIAL SEPTAL DEFECT [None]
  - BREECH PRESENTATION [None]
  - CAESAREAN SECTION [None]
  - DEAFNESS [None]
  - DRUG EXPOSURE DURING PREGNANCY [None]
  - HIP DYSPLASIA [None]
  - HYPERTROPHIC CARDIOMYOPATHY [None]
  - MATERNAL CONDITION AFFECTING FOETUS [None]
  - MIDDLE EAR EFFUSION [None]
  - PREMATURE BABY [None]
